FAERS Safety Report 6198909-4 (Version None)
Quarter: 2009Q2

REPORT INFORMATION
  Report Type: 
  Country: None (occurrence: None)
  Receive Date: 20090522
  Receipt Date: 20090518
  Transmission Date: 20091009
  Serious: Yes (Hospitalization)
  Sender: FDA-Public Use
  Company Number: US-ROXANE LABORATORIES, INC.-2009-RO-00511RO

PATIENT
  Age: 79 Year
  Sex: Male

DRUGS (9)
  1. AMLODIPINE [Suspect]
     Indication: BLOOD PRESSURE INCREASED
     Dosage: 2.5MG
  2. AMLODIPINE [Suspect]
     Dosage: 10MG
  3. FUROSEMIDE [Suspect]
  4. ASPIRIN [Suspect]
  5. CARVEDILOL [Suspect]
  6. SIMVASTATIN [Suspect]
  7. SPIRONOLACTONE [Suspect]
  8. VALSARTAN [Suspect]
  9. CLONIDINE [Concomitant]
     Indication: BLOOD PRESSURE INCREASED
     Dosage: .2MG

REACTIONS (7)
  - BLOOD CREATININE INCREASED [None]
  - BLOOD POTASSIUM INCREASED [None]
  - BLOOD PRESSURE INCREASED [None]
  - BLOOD UREA INCREASED [None]
  - HYPOVOLAEMIA [None]
  - MYOCLONUS [None]
  - RENAL FAILURE ACUTE [None]
